FAERS Safety Report 6309684-4 (Version None)
Quarter: 2009Q3

REPORT INFORMATION
  Report Type: 
  Country: None (occurrence: None)
  Receive Date: 20090814
  Receipt Date: 20090811
  Transmission Date: 20100115
  Serious: Yes (Death, Hospitalization, Other)
  Sender: FDA-Public Use
  Company Number: PHHY2009BR33726

PATIENT
  Sex: Female

DRUGS (11)
  1. FORASEQ [Suspect]
     Dosage: 1 DF, BID
  2. FORASEQ [Suspect]
     Dosage: 1 DF, QID
  3. DUOVENT [Concomitant]
     Indication: DYSPNOEA
  4. SPIRIVA [Concomitant]
     Dosage: UNK
  5. FORMOTEROL W/BUDESONIDE [Concomitant]
     Dosage: UNK
  6. OMEPRAZOLE [Concomitant]
     Indication: GASTRITIS
  7. TYLENOL (CAPLET) [Concomitant]
     Indication: HEADACHE
  8. AMIODARONE HCL [Concomitant]
     Indication: ARRHYTHMIA
  9. AMINOFILIN [Concomitant]
  10. PREDNISONE [Concomitant]
  11. SALBUTAMOL [Concomitant]

REACTIONS (5)
  - MALAISE [None]
  - MULTI-ORGAN FAILURE [None]
  - PNEUMONIA [None]
  - PYREXIA [None]
  - SEPSIS [None]
